FAERS Safety Report 10850228 (Version 1)
Quarter: 2015Q1

REPORT INFORMATION
  Report Type: Spontaneous
  Country: US (occurrence: US)
  Receive Date: 20150221
  Receipt Date: 20150221
  Transmission Date: 20150721
  Serious: No
  Sender: FDA-Public Use
  Company Number: US-NOVEN-15US013376

PATIENT
  Sex: Female

DRUGS (3)
  1. MINIVELLE [Suspect]
     Active Substance: ESTRADIOL
     Indication: HORMONE REPLACEMENT THERAPY
     Dosage: .1 MG PATCHES,2 PATCHES, TWICE A WEEK
     Route: 062
     Dates: start: 2014
  2. ESTRADIOL. [Concomitant]
     Active Substance: ESTRADIOL
     Indication: HORMONE REPLACEMENT THERAPY
  3. MINIVELLE [Suspect]
     Active Substance: ESTRADIOL
     Dosage: .1 MG PATCHES,2 PATCHES TWICE A WEEK
     Route: 062

REACTIONS (4)
  - Drug ineffective [Not Recovered/Not Resolved]
  - Wrong technique in drug usage process [Not Recovered/Not Resolved]
  - Drug prescribing error [Not Recovered/Not Resolved]
  - Product quality issue [Not Recovered/Not Resolved]
